FAERS Safety Report 9485356 (Version 1)
Quarter: 2013Q3

REPORT INFORMATION
  Report Type: Report from Study
  Country: DE (occurrence: DE)
  Receive Date: 20130828
  Receipt Date: 20130828
  Transmission Date: 20140515
  Serious: Yes (Hospitalization)
  Sender: FDA-Public Use
  Company Number: DE-ROCHE-1267142

PATIENT
  Sex: Female

DRUGS (10)
  1. RITUXIMAB [Suspect]
     Indication: RHEUMATOID ARTHRITIS
     Route: 065
     Dates: start: 20090122
  2. RITUXIMAB [Suspect]
     Route: 065
     Dates: start: 20090909
  3. RITUXIMAB [Suspect]
     Route: 065
     Dates: start: 20100426
  4. RITUXIMAB [Suspect]
     Route: 065
     Dates: start: 20111122
  5. RITUXIMAB [Suspect]
     Route: 065
     Dates: start: 20120612
  6. METHOTREXATE [Suspect]
     Indication: RHEUMATOID ARTHRITIS
     Route: 065
  7. METHOTREXATE [Suspect]
     Route: 065
  8. METHOTREXATE [Suspect]
     Route: 065
  9. METHOTREXATE [Suspect]
     Route: 065
  10. METHOTREXATE [Suspect]
     Route: 065

REACTIONS (1)
  - Back pain [Recovered/Resolved]
